FAERS Safety Report 7587533-4 (Version None)
Quarter: 2011Q3

REPORT INFORMATION
  Report Type: 
  Country: None (occurrence: None)
  Receive Date: 20110704
  Receipt Date: 20110620
  Transmission Date: 20111222
  Serious: Yes (Other)
  Sender: FDA-Public Use
  Company Number: PHHY2011US54873

PATIENT
  Sex: Female

DRUGS (2)
  1. DIOVAN [Suspect]
     Dosage: 160 MG ONCE DAILY IN THE MORNING
  2. METOPROLOL TARTRATE [Concomitant]
     Dosage: UNK

REACTIONS (3)
  - ANEURYSM [None]
  - BRADYPHRENIA [None]
  - MALAISE [None]
